FAERS Safety Report 8905260 (Version 40)
Quarter: 2020Q1

REPORT INFORMATION
  Report Type: Report from Study
  Country: CA (occurrence: CA)
  Receive Date: 20121112
  Receipt Date: 20200304
  Transmission Date: 20200409
  Serious: Yes (Death, Hospitalization, Other)
  Sender: FDA-Public Use
  Company Number: PHHY2012CA103229

PATIENT
  Age: 74 Year
  Sex: Female

DRUGS (11)
  1. SANDOSTATIN LAR DEPOT [Suspect]
     Active Substance: OCTREOTIDE ACETATE
     Dosage: 30 MG, QMO
     Route: 030
     Dates: start: 20141113
  2. SANDOSTATIN LAR DEPOT [Suspect]
     Active Substance: OCTREOTIDE ACETATE
     Indication: PANCREATIC NEUROENDOCRINE TUMOUR METASTATIC
     Dosage: 30 MG, QMO
     Route: 030
     Dates: start: 20121012
  3. TEVA CAPECITABINE [Concomitant]
     Indication: PRODUCT USED FOR UNKNOWN INDICATION
     Dosage: 2 DF, BID
     Route: 048
  4. TEVA CAPECITABINE [Concomitant]
     Dosage: 150 MG, BID (150 MG, 1 TABS 2 TIMES A DAY)
     Route: 048
  5. TEVA CAPECITABINE [Concomitant]
     Dosage: 500 MG, BID (2 TABLETS 2 TIMES A DAY)
     Route: 065
  6. SANDOSTATIN [Suspect]
     Active Substance: OCTREOTIDE ACETATE
     Indication: PANCREATIC NEUROENDOCRINE TUMOUR METASTATIC
     Dosage: UNK UG, TID FOR ONE WEEK
     Route: 058
     Dates: start: 20121005, end: 20121012
  7. PMS-ONDANSETRON [Concomitant]
     Indication: PRODUCT USED FOR UNKNOWN INDICATION
     Dosage: 8 MG, QD
     Route: 048
  8. JAMP VITAMIN B12 [Concomitant]
     Indication: PRODUCT USED FOR UNKNOWN INDICATION
     Dosage: 1200 UG (DIE), QD
     Route: 048
  9. SANDOSTATIN LAR DEPOT [Suspect]
     Active Substance: OCTREOTIDE ACETATE
     Dosage: 30 MG, QMO
     Route: 030
     Dates: start: 20190205
  10. SUTENT [Suspect]
     Active Substance: SUNITINIB MALATE
     Indication: PRODUCT USED FOR UNKNOWN INDICATION
     Dosage: 12.5 MG, UNK
     Route: 065
  11. TEMOZOLOMIDE TARO [Concomitant]
     Indication: PRODUCT USED FOR UNKNOWN INDICATION
     Dosage: 100 MG, QD (3 CAPSULES 1XDAY)
     Route: 048

REACTIONS (38)
  - Anaemia [Unknown]
  - Pallor [Unknown]
  - Dizziness [Unknown]
  - Diabetes mellitus [Unknown]
  - Loss of consciousness [Unknown]
  - Pain in extremity [Unknown]
  - Arthralgia [Unknown]
  - Pain [Recovering/Resolving]
  - Disorientation [Unknown]
  - Product quality issue [Unknown]
  - Nausea [Unknown]
  - Seizure [Unknown]
  - Nasopharyngitis [Unknown]
  - Movement disorder [Unknown]
  - Injection site pain [Recovered/Resolved]
  - General physical health deterioration [Fatal]
  - Gait disturbance [Unknown]
  - Body temperature decreased [Unknown]
  - Hypertension [Unknown]
  - Hypotension [Unknown]
  - Herpes zoster [Recovering/Resolving]
  - Needle issue [Unknown]
  - Fatigue [Unknown]
  - Urinary tract infection [Unknown]
  - Gait inability [Unknown]
  - Hypoglycaemia [Unknown]
  - Stress [Unknown]
  - Injection site pain [Unknown]
  - Cerebral haemorrhage [Unknown]
  - Fall [Unknown]
  - Blood pressure diastolic decreased [Unknown]
  - Musculoskeletal pain [Recovered/Resolved]
  - Malaise [Unknown]
  - Hypoaesthesia [Unknown]
  - Sensory loss [Unknown]
  - Balance disorder [Unknown]
  - Rhinorrhoea [Unknown]
  - Back pain [Unknown]

NARRATIVE: CASE EVENT DATE: 20121105
